FAERS Safety Report 15785957 (Version 1)
Quarter: 2019Q1

REPORT INFORMATION
  Report Type: Spontaneous
  Country: US (occurrence: US)
  Receive Date: 20190103
  Receipt Date: 20190103
  Transmission Date: 20190417
  Serious: Yes (Death)
  Sender: FDA-Public Use
  Company Number: None

PATIENT
  Age: 75 Year
  Sex: Female
  Weight: 100 kg

DRUGS (22)
  1. ELIQUIS [Suspect]
     Active Substance: APIXABAN
     Indication: ATRIAL FIBRILLATION
     Route: 048
     Dates: start: 20140410, end: 20181227
  2. ALBUTEROL 0.083% NEBS [Concomitant]
  3. FERROUS SULFATE 325MG [Concomitant]
     Active Substance: FERROUS SULFATE
  4. LEVOTHYROXINE 25MCG TAB [Concomitant]
  5. ATORVASTATIN 40MG TAB [Concomitant]
  6. PREDNISONE 1MG TAB [Concomitant]
  7. ALPRAZOLAM 0.25MG TAB [Concomitant]
  8. AZELASTINE 137MCG NASAL SPRAY [Concomitant]
  9. BENZONATATE 100MG CAPS [Concomitant]
  10. COREG 25MG TAB [Concomitant]
  11. DESLORATADINE 5MG TAB [Concomitant]
  12. POTASSIUM 10MEQ CAP [Concomitant]
  13. VITAMIN D3 4000IU CAP [Concomitant]
  14. ESOMEPRAZOLE 40MG CAP [Concomitant]
  15. FUROSEMIDE 40MG TAB [Concomitant]
  16. GABAPENTIN 300MG CAP [Concomitant]
     Active Substance: GABAPENTIN
  17. NOVOLOG [Concomitant]
     Active Substance: INSULIN ASPART
  18. BASAGLAR [Concomitant]
     Active Substance: INSULIN GLARGINE
  19. ESCITALOPRAM 10MG TAB [Concomitant]
  20. MS CONTIN 30MG TAB [Concomitant]
  21. SILDENAFIL 20MG TAB [Concomitant]
     Active Substance: SILDENAFIL
  22. COMPAZINE 10MG TAB [Concomitant]

REACTIONS (6)
  - Cough [None]
  - Subdural haematoma [None]
  - Cellulitis [None]
  - Disorganised speech [None]
  - Cerebral haemorrhage [None]
  - Disorientation [None]

NARRATIVE: CASE EVENT DATE: 20181227
